FAERS Safety Report 6737983-0 (Version None)
Quarter: 2010Q2

REPORT INFORMATION
  Report Type: 
  Country: None (occurrence: None)
  Receive Date: 20100524
  Receipt Date: 20100514
  Transmission Date: 20101027
  Serious: Yes (Hospitalization, Other)
  Sender: FDA-Public Use
  Company Number: JP-ROCHE-694358

PATIENT
  Age: 14 Year
  Sex: Male

DRUGS (19)
  1. TOCILIZUMAB [Suspect]
     Indication: JUVENILE ARTHRITIS
     Dosage: FORM: INJECTION
     Route: 041
     Dates: start: 20100224, end: 20100309
  2. PREDONINE [Concomitant]
     Route: 048
     Dates: start: 20100129, end: 20100205
  3. PREDONINE [Concomitant]
     Route: 048
     Dates: start: 20100209, end: 20100212
  4. PREDONINE [Concomitant]
     Route: 048
     Dates: start: 20100216, end: 20100219
  5. PREDONINE [Concomitant]
     Route: 048
     Dates: start: 20100223, end: 20100304
  6. PREDONINE [Concomitant]
     Route: 048
     Dates: start: 20100305, end: 20100315
  7. PREDONINE [Concomitant]
     Route: 048
     Dates: start: 20100316, end: 20100318
  8. PREDONINE [Concomitant]
     Route: 048
     Dates: start: 20100322, end: 20100326
  9. PREDONINE [Concomitant]
     Route: 048
     Dates: start: 20100419, end: 20100505
  10. PREDONINE [Concomitant]
     Route: 048
     Dates: start: 20100506
  11. SOL-MELCORT [Concomitant]
     Dosage: FORM: INJECTION
     Route: 042
     Dates: start: 20100206, end: 20100208
  12. SOL-MELCORT [Concomitant]
     Route: 042
     Dates: start: 20100213, end: 20100215
  13. SOL-MELCORT [Concomitant]
     Route: 042
     Dates: start: 20100220, end: 20100222
  14. SOL-MELCORT [Concomitant]
     Route: 042
     Dates: start: 20100319, end: 20100321
  15. IBRUPROFEN [Concomitant]
     Dosage: FORM: PERORAL AGENT
     Route: 048
     Dates: start: 20100112, end: 20100319
  16. NAPROXEN [Concomitant]
     Route: 048
     Dates: start: 20100122, end: 20100129
  17. DEXAMETHASONE PALMITATE [Concomitant]
     Route: 041
     Dates: start: 20100331, end: 20100331
  18. DEXAMETHASONE PALMITATE [Concomitant]
     Route: 041
     Dates: start: 20100401, end: 20100418
  19. FRAGMIN [Concomitant]
     Dates: start: 20100316, end: 20100501

REACTIONS (2)
  - HISTIOCYTOSIS HAEMATOPHAGIC [None]
  - LIVER DISORDER [None]
